FAERS Safety Report 6503615-X (Version None)
Quarter: 2009Q4

REPORT INFORMATION
  Report Type: 
  Country: None (occurrence: None)
  Receive Date: 20091217
  Receipt Date: 20091207
  Transmission Date: 20100525
  Serious: Yes (Other)
  Sender: FDA-Public Use
  Company Number: US-ELI_LILLY_AND_COMPANY-US200912001531

PATIENT
  Sex: Female

DRUGS (4)
  1. CYMBALTA [Suspect]
     Indication: DEPRESSION
     Dosage: 60 MG, DAILY (1/D)
     Route: 065
     Dates: end: 20090101
  2. XANAX [Concomitant]
  3. WELLBUTRIN [Concomitant]
  4. TOFRANIL [Concomitant]

REACTIONS (4)
  - CHOKING [None]
  - DYSPHAGIA [None]
  - MASTICATION DISORDER [None]
  - TARDIVE DYSKINESIA [None]
